FAERS Safety Report 10747963 (Version 1)
Quarter: 2015Q1

REPORT INFORMATION
  Report Type: Spontaneous
  Country: SE (occurrence: SE)
  Receive Date: 20150129
  Receipt Date: 20150129
  Transmission Date: 20150721
  Serious: Yes (Hospitalization)
  Sender: FDA-Public Use
  Company Number: SE-ASTRAZENECA-2015SE06457

PATIENT
  Age: 26 Year
  Sex: Male

DRUGS (8)
  1. BUSPIRONE [Suspect]
     Active Substance: BUSPIRONE HYDROCHLORIDE
     Route: 065
     Dates: start: 20140109, end: 20140109
  2. MOVICOL [Concomitant]
     Active Substance: POLYETHYLENE GLYCOL 3350\POTASSIUM CHLORIDE\SODIUM BICARBONATE\SODIUM CHLORIDE
  3. SEROQUEL [Suspect]
     Active Substance: QUETIAPINE FUMARATE
     Route: 048
     Dates: start: 20140109, end: 20140109
  4. CISORDINOL DEPOT [Concomitant]
     Active Substance: ZUCLOPENTHIXOL
  5. SEROQUEL [Suspect]
     Active Substance: QUETIAPINE FUMARATE
     Route: 048
     Dates: start: 20140109, end: 20140109
  6. HALDOL [Concomitant]
     Active Substance: HALOPERIDOL
  7. PROMETHAZINE [Suspect]
     Active Substance: PROMETHAZINE\PROMETHAZINE HYDROCHLORIDE
     Route: 048
     Dates: start: 20140109, end: 20140109
  8. THERALEN [Concomitant]
     Active Substance: TRIMEPRAZINE

REACTIONS (3)
  - Suicidal ideation [Recovered/Resolved]
  - Vomiting [Recovered/Resolved]
  - Toxicity to various agents [Recovered/Resolved]

NARRATIVE: CASE EVENT DATE: 20140109
